FAERS Safety Report 25746860 (Version 2)
Quarter: 2025Q3

REPORT INFORMATION
  Report Type: Spontaneous
  Country: US (occurrence: US)
  Receive Date: 20250901
  Receipt Date: 20250929
  Transmission Date: 20251020
  Serious: No
  Sender: SANOFI AVENTIS
  Company Number: US-SA-2025SA254661

PATIENT
  Sex: Female

DRUGS (12)
  1. DUPIXENT [Suspect]
     Active Substance: DUPILUMAB
     Indication: Emphysema
     Dosage: 300 MG, QOW
     Route: 058
  2. BUDESONIDE [Concomitant]
     Active Substance: BUDESONIDE
  3. BETAMETHASONE [Concomitant]
     Active Substance: BETAMETHASONE
  4. LORATADINE [Concomitant]
     Active Substance: LORATADINE
  5. FAMOTIDINE [Concomitant]
     Active Substance: FAMOTIDINE
  6. IPRATROPIUM [Concomitant]
     Active Substance: IPRATROPIUM
  7. ASPIRIN [Concomitant]
     Active Substance: ASPIRIN
  8. AMLODIPINE [Concomitant]
     Active Substance: AMLODIPINE BESYLATE
  9. ROFLUMILAST [Concomitant]
     Active Substance: ROFLUMILAST
  10. ATORVASTATIN [Concomitant]
     Active Substance: ATORVASTATIN
  11. AZITHROMYCIN [Concomitant]
     Active Substance: AZITHROMYCIN
  12. ROSUVASTATIN [Concomitant]
     Active Substance: ROSUVASTATIN

REACTIONS (2)
  - Product dose omission in error [Unknown]
  - Product use in unapproved indication [Unknown]
